FAERS Safety Report 9264937 (Version 2)
Quarter: 2013Q2

REPORT INFORMATION
  Report Type: Spontaneous
  Country: NO (occurrence: NO)
  Receive Date: 20130501
  Receipt Date: 20130607
  Transmission Date: 20140414
  Serious: Yes (Other)
  Sender: FDA-Public Use
  Company Number: NO-ROCHE-1217680

PATIENT
  Sex: Male

DRUGS (2)
  1. TOCILIZUMAB [Suspect]
     Indication: VASCULITIS
     Route: 065
     Dates: start: 201211
  2. PREDNISOLONE [Concomitant]
     Route: 065

REACTIONS (1)
  - Polyneuropathy [Unknown]
